FAERS Safety Report 11685319 (Version 7)
Quarter: 2016Q3

REPORT INFORMATION
  Report Type: Report from Study
  Country: US (occurrence: US)
  Receive Date: 20151030
  Receipt Date: 20160725
  Transmission Date: 20161109
  Serious: No
  Sender: FDA-Public Use
  Company Number: PHHY2015US097800

PATIENT
  Age: 52 Year
  Sex: Female

DRUGS (2)
  1. FLU [Concomitant]
     Active Substance: INFLUENZA VIRUS VACCINE
     Indication: PROPHYLAXIS
     Route: 065
     Dates: start: 20150911, end: 20150911
  2. GILENYA [Suspect]
     Active Substance: FINGOLIMOD HYDROCHLORIDE
     Indication: MULTIPLE SCLEROSIS
     Dosage: UNK UNK, QD
     Route: 048

REACTIONS (18)
  - High density lipoprotein increased [Unknown]
  - Headache [Recovered/Resolved]
  - Muscle spasms [Recovered/Resolved]
  - Bronchitis [Recovered/Resolved]
  - Procedural pain [Recovered/Resolved]
  - Ligament sprain [Recovered/Resolved]
  - Eye haemorrhage [Recovered/Resolved]
  - Migraine [Recovered/Resolved]
  - Cubital tunnel syndrome [Recovered/Resolved]
  - Gamma-glutamyltransferase increased [Unknown]
  - Sinus congestion [Recovered/Resolved]
  - Carpal tunnel syndrome [Recovered/Resolved]
  - Muscular weakness [Recovered/Resolved]
  - Lymphocyte count decreased [Unknown]
  - Conjunctivitis [Recovered/Resolved]
  - White blood cell count decreased [Unknown]
  - Conjunctival haemorrhage [Recovered/Resolved]
  - Vitamin D deficiency [Recovered/Resolved]

NARRATIVE: CASE EVENT DATE: 20150601
